FAERS Safety Report 8177608-3 (Version None)
Quarter: 2012Q1

REPORT INFORMATION
  Report Type: 
  Country: None (occurrence: None)
  Receive Date: 20120301
  Receipt Date: 20120222
  Transmission Date: 20120608
  Serious: Yes (Hospitalization, Disabling)
  Sender: FDA-Public Use
  Company Number: PHHY2012MX010677

PATIENT
  Sex: Female

DRUGS (7)
  1. GLUCOSAMINE [Concomitant]
     Indication: ARTHRITIS
     Dosage: TWO CAPSULES EVERY 12 HRS
  2. COD-LIVER OIL [Concomitant]
  3. GAVINDO [Concomitant]
     Indication: ARTHRITIS
  4. ZOLEDRONOC ACID [Suspect]
     Indication: OSTEOPOROSIS
     Dosage: 5 MG/ 100 ML ONCE A YEAR
     Route: 042
     Dates: start: 20100201
  5. ZOLEDRONOC ACID [Suspect]
     Dosage: 5 MG/ 100 ML ONCE A YEAR
     Route: 042
     Dates: start: 20110501
  6. HYZAAR [Concomitant]
     Indication: HYPERTENSION
  7. CALCIUM [Concomitant]
     Indication: OSTEOPOROSIS

REACTIONS (5)
  - HIP FRACTURE [None]
  - GAIT DISTURBANCE [None]
  - FEMUR FRACTURE [None]
  - FALL [None]
  - DYSSTASIA [None]
